FAERS Safety Report 8330245-X (Version None)
Quarter: 2012Q2

REPORT INFORMATION
  Report Type: 
  Country: None (occurrence: None)
  Receive Date: 20120502
  Receipt Date: 20120424
  Transmission Date: 20120825
  Serious: Yes (Hospitalization)
  Sender: FDA-Public Use
  Company Number: US-VERTEX PHARMACEUTICALS INC.-AE-2012-005883

PATIENT
  Sex: Male
  Weight: 113.5 kg

DRUGS (3)
  1. COPEGUS [Concomitant]
     Indication: HEPATITIS C
     Route: 048
     Dates: start: 20120312, end: 20120416
  2. INCIVEK [Suspect]
     Indication: HEPATITIS C
     Route: 048
     Dates: start: 20120312, end: 20120416
  3. PEGASYS [Concomitant]
     Indication: HEPATITIS C
     Route: 058
     Dates: start: 20120312, end: 20120416

REACTIONS (6)
  - BLOOD SODIUM DECREASED [None]
  - PLATELET COUNT DECREASED [None]
  - VOMITING [None]
  - NAUSEA [None]
  - HAEMATOCHEZIA [None]
  - ASTHENIA [None]
